FAERS Safety Report 5425210-6 (Version None)
Quarter: 2007Q3

REPORT INFORMATION
  Report Type: 
  Country: None (occurrence: None)
  Receive Date: 20070824
  Receipt Date: 20070815
  Transmission Date: 20080115
  Serious: Yes (Other)
  Sender: FDA-Public Use
  Company Number: DE-ROCHE-512154

PATIENT
  Age: 42 Year
  Sex: Female

DRUGS (2)
  1. PEGASYS [Suspect]
     Indication: HEPATITIS C
     Route: 065
     Dates: start: 20060801, end: 20070401
  2. COPEGUS [Suspect]
     Indication: HEPATITIS C
     Route: 065
     Dates: start: 20060801, end: 20070401

REACTIONS (3)
  - AUTOIMMUNE HEPATITIS [None]
  - FIBROSIS [None]
  - HEPATIC FAILURE [None]
